FAERS Safety Report 6226406-6 (Version None)
Quarter: 2009Q2

REPORT INFORMATION
  Report Type: 
  Country: None (occurrence: None)
  Receive Date: 20090612
  Receipt Date: 20090514
  Transmission Date: 20091009
  Serious: No
  Sender: FDA-Public Use
  Company Number: US-ABBOTT-09P-163-0573755-00

PATIENT
  Sex: Male
  Weight: 79.904 kg

DRUGS (6)
  1. HUMIRA [Suspect]
     Indication: CROHN'S DISEASE
     Dosage: 1SHOT 1WEEK, 3SHOT 1WEEK LATER, 2SHOT 1WEEK LATER
     Dates: start: 20090422
  2. HUMIRA [Suspect]
     Indication: COLITIS ULCERATIVE
  3. LIELDA [Concomitant]
     Indication: DRUG USE FOR UNKNOWN INDICATION
     Route: 048
  4. MERCAPTOPURINE [Concomitant]
     Indication: DRUG USE FOR UNKNOWN INDICATION
     Route: 048
  5. VFL 3  DS [Concomitant]
     Indication: COLITIS ULCERATIVE
     Dosage: 2 PACKET 90 BILLION BACTERIA 2 X DAILY
     Route: 048
  6. TYLENOL (CAPLET) [Concomitant]
     Indication: DRUG USE FOR UNKNOWN INDICATION
     Dosage: AS REQUIRED

REACTIONS (2)
  - ABASIA [None]
  - PAIN IN EXTREMITY [None]
